FAERS Safety Report 15249100 (Version 2)
Quarter: 2018Q3

REPORT INFORMATION
  Report Type: Spontaneous
  Country: US (occurrence: US)
  Receive Date: 20180807
  Receipt Date: 20180828
  Transmission Date: 20181010
  Serious: No
  Sender: FDA-Public Use
  Company Number: US-ASTRAZENECA-2018SE96738

PATIENT
  Sex: Female
  Weight: 68 kg

DRUGS (3)
  1. PULMICORT FLEXHALER [Suspect]
     Active Substance: BUDESONIDE
     Indication: ASTHMA
     Route: 055
     Dates: start: 20180625
  2. PULMICORT FLEXHALER [Suspect]
     Active Substance: BUDESONIDE
     Indication: ASTHMA
     Dosage: 180 MCGS, 4 PUFFS IN THE MORNING
     Route: 055
     Dates: start: 200805
  3. PULMICORT FLEXHALER [Suspect]
     Active Substance: BUDESONIDE
     Indication: ASTHMA
     Dosage: 180 MCGS, 2 PUFFS TWICE DAILY
     Route: 055
     Dates: start: 200708

REACTIONS (5)
  - Off label use [Unknown]
  - Intentional product misuse [Not Recovered/Not Resolved]
  - Asthma [Unknown]
  - Insomnia [Recovered/Resolved]
  - Device malfunction [Unknown]
